FAERS Safety Report 7911975-8 (Version None)
Quarter: 2011Q4

REPORT INFORMATION
  Report Type: 
  Country: None (occurrence: None)
  Receive Date: 20111114
  Receipt Date: 20111103
  Transmission Date: 20120403
  Serious: Yes (Other)
  Sender: FDA-Public Use
  Company Number: VE-JNJFOC-20111102578

PATIENT
  Sex: Male
  Weight: 111 kg

DRUGS (9)
  1. CONCOR [Concomitant]
     Indication: HYPERTENSION
     Route: 065
  2. METHOTREXATE [Concomitant]
     Route: 065
  3. AMARYL [Concomitant]
     Indication: DIABETES MELLITUS
     Route: 065
  4. CRESTOR [Concomitant]
     Indication: HYPERLIPIDAEMIA
     Route: 065
  5. REMICADE [Suspect]
     Indication: ANKYLOSING SPONDYLITIS
     Route: 042
     Dates: start: 20110606
  6. METICORTEN [Concomitant]
     Indication: ARTHRITIS
     Route: 065
  7. GLUCOFAGE [Concomitant]
     Indication: DIABETES MELLITUS
     Route: 065
  8. IRBESARTAN [Concomitant]
     Indication: HYPERTENSION
     Route: 065
  9. IMMUNE GLOBULIN NOS [Concomitant]
     Route: 065

REACTIONS (2)
  - GUILLAIN-BARRE SYNDROME [None]
  - MUSCULAR WEAKNESS [None]
